FAERS Safety Report 5116300-6 (Version None)
Quarter: 2006Q3

REPORT INFORMATION
  Report Type: 
  Country: None (occurrence: None)
  Receive Date: 20060927
  Receipt Date: 20060906
  Transmission Date: 20061208
  Serious: Yes (Hospitalization)
  Sender: FDA-Public Use
  Company Number: DE-BOEHRINGER INGELHEIM GMBH, GERMANY-2006-DE-04748DE

PATIENT
  Sex: Female
  Weight: 60 kg

DRUGS (2)
  1. MICARDIS HCT [Suspect]
     Indication: HYPERTENSION
     Dosage: 40 MG TELMISARTAN, 12,5 MG HCT
     Dates: start: 20060703, end: 20060830
  2. CYCLO-PROGYNOVA [Concomitant]

REACTIONS (1)
  - JAUNDICE [None]
